FAERS Safety Report 25886690 (Version 1)
Quarter: 2025Q4

REPORT INFORMATION
  Report Type: Spontaneous
  Country: US (occurrence: None)
  Receive Date: 20251005
  Receipt Date: 20251005
  Transmission Date: 20260118
  Serious: Yes (Disabling, Other)
  Sender: FDA-CTU
  Company Number: None

PATIENT
  Age: 25 Year
  Sex: Female
  Weight: 51.75 kg

DRUGS (2)
  1. ROCEPHIN [Suspect]
     Active Substance: CEFTRIAXONE SODIUM
     Indication: Bacterial infection
     Dates: start: 20221103, end: 20221103
  2. GINGER [Concomitant]
     Active Substance: GINGER

REACTIONS (13)
  - Pain [None]
  - Dysmenorrhoea [None]
  - Product dosage form issue [None]
  - Injection site pain [None]
  - Gait inability [None]
  - Skin odour abnormal [None]
  - Nausea [None]
  - Urinary tract infection [None]
  - Pelvic pain [None]
  - Pain in extremity [None]
  - Arthralgia [None]
  - Arthralgia [None]
  - Back pain [None]

NARRATIVE: CASE EVENT DATE: 20221103
